FAERS Safety Report 8454128-X (Version None)
Quarter: 2012Q2

REPORT INFORMATION
  Report Type: 
  Country: None (occurrence: None)
  Receive Date: 20120620
  Receipt Date: 20120613
  Transmission Date: 20120825
  Serious: Yes (Hospitalization, Other)
  Sender: FDA-Public Use
  Company Number: US-AMGEN-USASP2012037497

PATIENT
  Age: 92 Year
  Sex: Male
  Weight: 72.109 kg

DRUGS (2)
  1. PROCRIT [Suspect]
     Dosage: UNK UNK, QWK
     Dates: start: 20120101
  2. PROCRIT [Suspect]
     Indication: ANAEMIA
     Dosage: 10000 IU, QMO
     Dates: end: 20120101

REACTIONS (11)
  - BEDRIDDEN [None]
  - WOUND [None]
  - ADVERSE DRUG REACTION [None]
  - DECUBITUS ULCER [None]
  - HAEMOGLOBIN DECREASED [None]
  - WEIGHT DECREASED [None]
  - OVERDOSE [None]
  - ASTHENIA [None]
  - KIDNEY INFECTION [None]
  - CHEST PAIN [None]
  - INFECTIOUS DISEASE CARRIER [None]
